FAERS Safety Report 13922435 (Version 2)
Quarter: 2017Q4

REPORT INFORMATION
  Report Type: Spontaneous
  Country: DE (occurrence: DE)
  Receive Date: 20170830
  Receipt Date: 20171030
  Transmission Date: 20180320
  Serious: Yes (Other)
  Sender: FDA-Public Use
  Company Number: DE-BAYER-2017-158954

PATIENT
  Age: 42 Year
  Sex: Female

DRUGS (4)
  1. GADOVIST [Suspect]
     Active Substance: GADOBUTROL
     Indication: BREAST CANCER METASTATIC
     Dosage: 15 ML, ONCE
     Route: 042
     Dates: start: 20170630, end: 20170630
  2. GADOVIST [Suspect]
     Active Substance: GADOBUTROL
     Indication: NUCLEAR MAGNETIC RESONANCE IMAGING BRAIN
     Dosage: 15 ML, ONCE
     Route: 042
     Dates: start: 201701, end: 201701
  3. GADOVIST [Suspect]
     Active Substance: GADOBUTROL
     Indication: NUCLEAR MAGNETIC RESONANCE IMAGING BRAIN
     Dosage: 15 ML, ONCE
     Route: 042
     Dates: start: 20170818, end: 20170818
  4. GADOVIST [Suspect]
     Active Substance: GADOBUTROL
     Indication: NUCLEAR MAGNETIC RESONANCE IMAGING LIVER
     Dosage: 15 ML, ONCE
     Route: 042
     Dates: start: 20170704, end: 20170704

REACTIONS (1)
  - Contrast media deposition [Not Recovered/Not Resolved]

NARRATIVE: CASE EVENT DATE: 20170704
